FAERS Safety Report 4414253-7 (Version None)
Quarter: 2004Q3

REPORT INFORMATION
  Report Type: 
  Country: None (occurrence: None)
  Receive Date: 20040729
  Receipt Date: 20040716
  Transmission Date: 20050211
  Serious: Yes (Other)
  Sender: FDA-Public Use
  Company Number: 2004048187

PATIENT
  Sex: Male

DRUGS (5)
  1. PRODILANTIN (FOSPHENYTOIN SODIUM) [Suspect]
     Indication: MYOCLONUS
     Dosage: 700 MG, INTRAVENOUS
     Route: 042
     Dates: start: 20040715, end: 20040715
  2. PROPOFOL [Concomitant]
  3. OMEPRAZOLE [Concomitant]
  4. CLAVULIN (AMOXICILLIN TRIHYDRATE, CLAVULANATE POTASSIUM) [Concomitant]
  5. HEPARIN-FRACTION, CALCIUM SALT (HEPARIN-FRACTION, CALCIUM SALT) [Concomitant]

REACTIONS (1)
  - ELECTROCARDIOGRAM ABNORMAL [None]
